FAERS Safety Report 7428826-0 (Version None)
Quarter: 2011Q2

REPORT INFORMATION
  Report Type: 
  Country: None (occurrence: None)
  Receive Date: 20110421
  Receipt Date: 20110412
  Transmission Date: 20111010
  Serious: Yes (Death, Other)
  Sender: FDA-Public Use
  Company Number: MX-BRISTOL-MYERS SQUIBB COMPANY-15671498

PATIENT
  Age: 79 Year
  Sex: Female

DRUGS (1)
  1. APROVEL TABS [Suspect]
     Indication: HYPERTENSION
     Dosage: 1DF= 1/2 TABLET- 1/2 HOURS (1/2 TAB FOR EVERY 12 HOURS)
     Route: 048
     Dates: end: 20101219

REACTIONS (3)
  - CARDIAC ARREST [None]
  - DIABETIC COMPLICATION [None]
  - RENAL FAILURE [None]
